FAERS Safety Report 13406707 (Version 4)
Quarter: 2017Q4

REPORT INFORMATION
  Report Type: Report from Study
  Country: JP (occurrence: JP)
  Receive Date: 20170405
  Receipt Date: 20171023
  Transmission Date: 20180320
  Serious: Yes (Death, Hospitalization)
  Sender: FDA-Public Use
  Company Number: JP-EISAI MEDICAL RESEARCH-EC-2017-026476

PATIENT
  Age: 78 Year
  Sex: Female
  Weight: 48 kg

DRUGS (6)
  1. ZOMETA [Concomitant]
     Active Substance: ZOLEDRONIC ACID
  2. HALAVEN [Suspect]
     Active Substance: ERIBULIN MESYLATE
     Indication: TUBULAR BREAST CARCINOMA
     Route: 041
     Dates: start: 20151105, end: 20151105
  3. LANSOPRAZOLE. [Concomitant]
     Active Substance: LANSOPRAZOLE
  4. HALAVEN [Suspect]
     Active Substance: ERIBULIN MESYLATE
     Route: 041
     Dates: start: 20151126, end: 20160930
  5. TRAMAL [Concomitant]
     Active Substance: TRAMADOL
  6. MAGNESIUM OXIDE. [Concomitant]
     Active Substance: MAGNESIUM OXIDE

REACTIONS (4)
  - Leukopenia [Recovered/Resolved]
  - Pain in extremity [Recovering/Resolving]
  - Death [Fatal]
  - Neutropenia [Recovered/Resolved]

NARRATIVE: CASE EVENT DATE: 20160309
